FAERS Safety Report 4608923-5 (Version None)
Quarter: 2005Q1

REPORT INFORMATION
  Report Type: 
  Country: None (occurrence: None)
  Receive Date: 20050309
  Receipt Date: 20050224
  Transmission Date: 20050727
  Serious: Yes (Hospitalization)
  Sender: FDA-Public Use
  Company Number: 2005038034

PATIENT
  Age: 61 Year
  Sex: Male

DRUGS (8)
  1. CARDULAR PP (DOXAZOSIN) [Suspect]
     Indication: HYPERTENSION
     Dosage: ORAL
     Route: 048
     Dates: start: 20050221
  2. OLMESARTAN MEDOXOMIL (OLMESARTAN MDEOXOMIL) [Concomitant]
  3. NITRENDIPINE (NITRENDIPINE) [Concomitant]
  4. BISOPROLOL FUMARATE [Concomitant]
  5. ASPIRIN [Concomitant]
  6. GLIMEPIRIDE [Concomitant]
  7. SIMVASTATIN [Concomitant]
  8. PIOGLITAZONE HCL [Concomitant]

REACTIONS (4)
  - BLOOD GLUCOSE INCREASED [None]
  - ERYSIPELAS [None]
  - FEBRILE INFECTION [None]
  - SKIN ULCER [None]
